FAERS Safety Report 11317525 (Version 1)
Quarter: 2015Q3

REPORT INFORMATION
  Report Type: Spontaneous
  Country: US (occurrence: None)
  Receive Date: 20150727
  Receipt Date: 20150727
  Transmission Date: 20151125
  Serious: Yes (Other)
  Sender: FDA-Public Use
  Company Number: None

PATIENT
  Age: 59 Year
  Sex: Female
  Weight: 56.7 kg

DRUGS (3)
  1. ZITHROMAX [Suspect]
     Active Substance: AZITHROMYCIN DIHYDRATE
     Indication: SINUSITIS
     Route: 048
     Dates: start: 20150618, end: 20150624
  2. VITAMIN C [Concomitant]
     Active Substance: ASCORBIC ACID
  3. ELDERBERRY [Concomitant]

REACTIONS (2)
  - Decreased appetite [None]
  - Anosmia [None]

NARRATIVE: CASE EVENT DATE: 20150618
